FAERS Safety Report 9748846 (Version 1)
Quarter: 2013Q4

REPORT INFORMATION
  Report Type: Spontaneous
  Country: US (occurrence: US)
  Receive Date: 20131212
  Receipt Date: 20131212
  Transmission Date: 20140711
  Serious: No
  Sender: FDA-Public Use
  Company Number: US-INCYTE CORPORATION-2013IN001999

PATIENT
  Age: 71 Year
  Sex: Male

DRUGS (2)
  1. JAKAFI [Suspect]
     Indication: MYELOFIBROSIS
     Dosage: 20 MG, BID
     Route: 048
     Dates: start: 20130619
  2. ANTIHYPERTENSIVES [Suspect]
     Indication: HYPERTENSION

REACTIONS (1)
  - Adverse event [Unknown]
